FAERS Safety Report 4687998-1 (Version None)
Quarter: 2005Q2

REPORT INFORMATION
  Report Type: 
  Country: None (occurrence: None)
  Receive Date: 20050608
  Receipt Date: 20050525
  Transmission Date: 20051028
  Serious: Yes (Hospitalization, Other)
  Sender: FDA-Public Use
  Company Number: 2005BH000064

PATIENT
  Age: 24 Year
  Sex: Male
  Weight: 88.905 kg

DRUGS (2)
  1. SODIUM CITRATE [Suspect]
     Dosage: ONCE, IV
     Route: 042
     Dates: start: 20050526, end: 20050526
  2. 0.9% SODIUM CHLORIDE INJECTION IN PLASTIC CONTAINER [Suspect]
     Dosage: ONCE, IV
     Route: 042
     Dates: start: 20050526, end: 20050526

REACTIONS (8)
  - AGITATION [None]
  - CHILLS [None]
  - DISORIENTATION [None]
  - FALL [None]
  - HEADACHE [None]
  - INJECTION SITE PAIN [None]
  - LOSS OF CONSCIOUSNESS [None]
  - VOMITING [None]
